FAERS Safety Report 9120682 (Version 3)
Quarter: 2013Q1

REPORT INFORMATION
  Report Type: Spontaneous
  Country: NO (occurrence: NO)
  Receive Date: 20130226
  Receipt Date: 20130322
  Transmission Date: 20140127
  Serious: Yes (Other)
  Sender: FDA-Public Use
  Company Number: NO-AMGEN-NORSP2013010885

PATIENT
  Age: 63 Year
  Sex: Male

DRUGS (3)
  1. PANITUMUMAB [Suspect]
     Indication: NEURALGIA
     Dosage: UNK
     Route: 042
  2. ERBITUX [Suspect]
     Indication: NEURALGIA
     Dosage: UNK
     Route: 042
  3. PREGABALIN [Concomitant]
     Indication: NEURALGIA
     Dosage: 75 MG, TWICE DAILY

REACTIONS (4)
  - Iridocyclitis [Recovered/Resolved]
  - Uveitis [Recovered/Resolved]
  - Dry skin [Unknown]
  - Dermatitis acneiform [Recovering/Resolving]
